FAERS Safety Report 14861581 (Version 1)
Quarter: 2018Q2

REPORT INFORMATION
  Report Type: Spontaneous
  Country: US (occurrence: US)
  Receive Date: 20180508
  Receipt Date: 20180508
  Transmission Date: 20180711
  Serious: No
  Sender: FDA-Public Use
  Company Number: US-PERRIGO-18US002892

PATIENT
  Age: 4 Month
  Sex: Male

DRUGS (1)
  1. PERMETHRIN. [Suspect]
     Active Substance: PERMETHRIN
     Indication: BED BUG INFESTATION
     Dosage: UNKNOWN, SINGLE
     Route: 061
     Dates: start: 20160311, end: 20160311

REACTIONS (2)
  - Application site burn [Recovered/Resolved]
  - Off label use [Recovered/Resolved]

NARRATIVE: CASE EVENT DATE: 20160311
